FAERS Safety Report 13526241 (Version 1)
Quarter: 2017Q2

REPORT INFORMATION
  Report Type: Spontaneous
  Country: US (occurrence: US)
  Receive Date: 20170508
  Receipt Date: 20170508
  Transmission Date: 20170830
  Serious: No
  Sender: FDA-Public Use
  Company Number: None

PATIENT
  Age: 38 Year
  Sex: Female
  Weight: 112.5 kg

DRUGS (1)
  1. ATARAX [Suspect]
     Active Substance: HYDROXYZINE HYDROCHLORIDE
     Indication: ANXIETY
     Dosage: ?          QUANTITY:1 TABLET(S);?
     Route: 048

REACTIONS (13)
  - Pruritus [None]
  - Nausea [None]
  - Headache [None]
  - Oropharyngeal pain [None]
  - Dry throat [None]
  - Hallucination [None]
  - Anxiety [None]
  - Hypercoagulation [None]
  - Alopecia [None]
  - Rash macular [None]
  - Skin discolouration [None]
  - Sensory disturbance [None]
  - Dry skin [None]

NARRATIVE: CASE EVENT DATE: 20160101
